FAERS Safety Report 20445127 (Version 1)
Quarter: 2022Q1

REPORT INFORMATION
  Report Type: Spontaneous
  Country: US (occurrence: None)
  Receive Date: 20220208
  Receipt Date: 20220208
  Transmission Date: 20220423
  Serious: Yes (Hospitalization)
  Sender: FDA-Public Use
  Company Number: None

PATIENT
  Sex: Male

DRUGS (8)
  1. XELJANZ [Suspect]
     Active Substance: TOFACITINIB CITRATE
     Indication: Colitis ulcerative
     Dosage: FREQUENCY : TWICE A DAY;?
     Route: 048
     Dates: start: 20211216
  2. XELJANZ [Suspect]
     Active Substance: TOFACITINIB CITRATE
     Dosage: FREQUENCY : TWICE A DAY;?
     Route: 048
  3. DICYCLOMINE [Concomitant]
     Active Substance: DICYCLOMINE HYDROCHLORIDE
  4. HUMIRA CF PEN-CD/UC/HS START [Concomitant]
  5. HUMIRA [Concomitant]
     Active Substance: ADALIMUMAB
  6. MULTI VITAMI [Concomitant]
  7. VITAMIN D3 [Concomitant]
     Active Substance: CHOLECALCIFEROL
  8. ZYRTEC [Concomitant]
     Active Substance: CETIRIZINE HYDROCHLORIDE

REACTIONS (3)
  - Anaemia [None]
  - Colitis ulcerative [None]
  - Therapy interrupted [None]
